FAERS Safety Report 7750268-9 (Version None)
Quarter: 2011Q3

REPORT INFORMATION
  Report Type: 
  Country: None (occurrence: None)
  Receive Date: 20110914
  Receipt Date: 20110901
  Transmission Date: 20111222
  Serious: Yes (Other)
  Sender: FDA-Public Use
  Company Number: US-WATSON-2011-14128

PATIENT
  Age: 40 Year
  Sex: Female

DRUGS (1)
  1. INFED [Suspect]
     Indication: PRODUCT USED FOR UNKNOWN INDICATION
     Dosage: 1 TEST DOSE ONLY
     Route: 065
     Dates: start: 20110831

REACTIONS (5)
  - RHINITIS [None]
  - NASAL OEDEMA [None]
  - PARAESTHESIA ORAL [None]
  - CHEST DISCOMFORT [None]
  - DYSPNOEA [None]
